FAERS Safety Report 24789032 (Version 5)
Quarter: 2025Q1

REPORT INFORMATION
  Report Type: Report from Study
  Country: TR (occurrence: TR)
  Receive Date: 20241230
  Receipt Date: 20250307
  Transmission Date: 20250409
  Serious: Yes (Death, Hospitalization)
  Sender: ABBVIE
  Company Number: TR-ABBVIE-6065240

PATIENT
  Age: 66 Year
  Sex: Male
  Weight: 103 kg

DRUGS (2)
  1. CARBIDOPA\LEVODOPA [Suspect]
     Active Substance: CARBIDOPA\LEVODOPA
     Indication: Parkinson^s disease
     Route: 050
     Dates: start: 20200224, end: 20241209
  2. CARBIDOPA\LEVODOPA [Suspect]
     Active Substance: CARBIDOPA\LEVODOPA
     Route: 050
     Dates: start: 20241227

REACTIONS (3)
  - Cardiac arrest [Fatal]
  - Feeding disorder [Not Recovered/Not Resolved]
  - General physical health deterioration [Not Recovered/Not Resolved]

NARRATIVE: CASE EVENT DATE: 20241225
